FAERS Safety Report 5193875-2 (Version None)
Quarter: 2006Q4

REPORT INFORMATION
  Report Type: 
  Country: None (occurrence: None)
  Receive Date: 20061221
  Receipt Date: 20061212
  Transmission Date: 20070319
  Serious: Yes (Hospitalization)
  Sender: FDA-Public Use
  Company Number: 233993

PATIENT
  Age: 65 Year
  Sex: Female

DRUGS (9)
  1. AVASTIN [Suspect]
     Indication: NON-SMALL CELL LUNG CANCER
     Dosage: 790 MG, Q2W, INTRAVENOUS
     Route: 042
     Dates: start: 20061009, end: 20061113
  2. GEMCITABINE [Suspect]
     Indication: NON-SMALL CELL LUNG CANCER
     Dosage: 2070 MG, Q2W, INTRAVENOUS
     Route: 042
     Dates: start: 20061009, end: 20061113
  3. ALIMTA [Suspect]
     Indication: NON-SMALL CELL LUNG CANCER
     Dates: start: 20061019, end: 20061113
  4. TAGAMET [Concomitant]
  5. ADVAIR DISKUS 100/50 [Concomitant]
  6. PREMARIN [Concomitant]
  7. FOLIC ACID [Concomitant]
  8. AMBIEN [Concomitant]
  9. KYTRIL [Concomitant]

REACTIONS (9)
  - ABDOMINAL DISCOMFORT [None]
  - ABDOMINAL PAIN [None]
  - DRY EYE [None]
  - FATIGUE [None]
  - FEBRILE NEUTROPENIA [None]
  - HERPES VIRUS INFECTION [None]
  - HERPES ZOSTER [None]
  - KERATITIS INTERSTITIAL [None]
  - OCULAR HYPERAEMIA [None]
